FAERS Safety Report 22675401 (Version 8)
Quarter: 2023Q4

REPORT INFORMATION
  Report Type: Report from Study
  Country: ES (occurrence: ES)
  Receive Date: 20230706
  Receipt Date: 20231201
  Transmission Date: 20240109
  Serious: Yes (Hospitalization)
  Sender: FDA-Public Use
  Company Number: ES-SA-SAC20230630000585

PATIENT
  Age: 65 Year
  Sex: Male
  Weight: 83 kg

DRUGS (15)
  1. ISATUXIMAB [Suspect]
     Active Substance: ISATUXIMAB
     Indication: Plasma cell myeloma
     Dosage: 870 MG
     Route: 042
     Dates: start: 20230530, end: 20230530
  2. ISATUXIMAB [Suspect]
     Active Substance: ISATUXIMAB
     Dosage: 870 MG
     Route: 042
     Dates: start: 20230627, end: 20230627
  3. ISATUXIMAB [Suspect]
     Active Substance: ISATUXIMAB
     Dosage: 870 MG
     Route: 042
     Dates: start: 20230725, end: 20230725
  4. BORTEZOMIB [Suspect]
     Active Substance: BORTEZOMIB
     Indication: Plasma cell myeloma
     Dosage: 2.61 MG
     Route: 058
     Dates: start: 20230530, end: 20230530
  5. BORTEZOMIB [Suspect]
     Active Substance: BORTEZOMIB
     Dosage: 2.61 MG
     Route: 058
     Dates: start: 20230602, end: 20230602
  6. BORTEZOMIB [Suspect]
     Active Substance: BORTEZOMIB
     Dosage: 2.61 MG
     Route: 058
     Dates: start: 20230630, end: 20230630
  7. BORTEZOMIB [Suspect]
     Active Substance: BORTEZOMIB
     Dosage: 2.01 MG
     Route: 058
     Dates: start: 20230801, end: 20230801
  8. DEXAMETHASONE [Suspect]
     Active Substance: DEXAMETHASONE
     Indication: Plasma cell myeloma
     Dosage: 40 MG
     Route: 048
     Dates: start: 20230530, end: 20230530
  9. DEXAMETHASONE [Suspect]
     Active Substance: DEXAMETHASONE
     Dosage: 40 MG
     Route: 048
     Dates: start: 20230602, end: 20230602
  10. DEXAMETHASONE [Suspect]
     Active Substance: DEXAMETHASONE
     Dosage: 40 MG
     Route: 048
     Dates: start: 20230630, end: 20230630
  11. DEXAMETHASONE [Suspect]
     Active Substance: DEXAMETHASONE
     Dosage: 40 MG
     Route: 048
     Dates: start: 20230728, end: 20230728
  12. IBERDOMIDE [Suspect]
     Active Substance: IBERDOMIDE
     Indication: Plasma cell myeloma
     Dosage: 1.6 MG
     Route: 048
     Dates: start: 20230530, end: 20230530
  13. IBERDOMIDE [Suspect]
     Active Substance: IBERDOMIDE
     Dosage: 1.6 MG
     Route: 048
     Dates: start: 20230604, end: 20230604
  14. IBERDOMIDE [Suspect]
     Active Substance: IBERDOMIDE
     Dosage: 1.3 MG
     Route: 048
     Dates: start: 20230703, end: 20230703
  15. IBERDOMIDE [Suspect]
     Active Substance: IBERDOMIDE
     Dosage: 1 MG
     Route: 048
     Dates: start: 20230801, end: 20230801

REACTIONS (3)
  - Pancreatitis acute [Recovered/Resolved]
  - Vascular dementia [Recovered/Resolved with Sequelae]
  - Autonomic neuropathy [Recovered/Resolved]

NARRATIVE: CASE EVENT DATE: 20230603
